FAERS Safety Report 7841735-8 (Version None)
Quarter: 2011Q4

REPORT INFORMATION
  Report Type: 
  Country: None (occurrence: None)
  Receive Date: 20111020
  Receipt Date: 20111007
  Transmission Date: 20120403
  Serious: Yes (Other)
  Sender: FDA-Public Use
  Company Number: 2011SP044301

PATIENT
  Age: 60 Year
  Sex: Female
  Weight: 65 kg

DRUGS (6)
  1. PAXIL [Concomitant]
  2. PRANDIN [Concomitant]
  3. DULERA ORAL INHALATION [Suspect]
     Indication: PRODUCT USED FOR UNKNOWN INDICATION
  4. DIOVAN [Concomitant]
  5. ZYRTEC [Concomitant]
  6. ESTRACE [Concomitant]

REACTIONS (3)
  - LIP SWELLING [None]
  - CHEILITIS [None]
  - SWOLLEN TONGUE [None]
